FAERS Safety Report 4810129-1 (Version None)
Quarter: 2005Q4

REPORT INFORMATION
  Report Type: 
  Country: None (occurrence: None)
  Receive Date: 20051026
  Receipt Date: 20051014
  Transmission Date: 20060501
  Serious: Yes (Other)
  Sender: FDA-Public Use
  Company Number: FR-ABBOTT-05P-056-0314348-00

PATIENT
  Age: 1 Day
  Sex: Female
  Weight: 3.07 kg

DRUGS (5)
  1. ZECLAR TABLETS [Suspect]
     Indication: DRUG EXPOSURE DURING PREGNANCY
  2. AZITHROMYCIN [Suspect]
     Indication: DRUG EXPOSURE DURING PREGNANCY
  3. PROGUANIL [Suspect]
     Indication: DRUG EXPOSURE DURING PREGNANCY
  4. ATOVAQUONE [Suspect]
     Indication: DRUG EXPOSURE DURING PREGNANCY
  5. AMOXICILLIN TRIHYDRATE [Suspect]
     Indication: DRUG EXPOSURE DURING PREGNANCY

REACTIONS (3)
  - ANAL ATRESIA [None]
  - DRUG EXPOSURE DURING PREGNANCY [None]
  - FALLOT'S TETRALOGY [None]
